FAERS Safety Report 23508675 (Version 1)
Quarter: 2024Q1

REPORT INFORMATION
  Report Type: Spontaneous
  Country: US (occurrence: US)
  Receive Date: 20240209
  Receipt Date: 20240209
  Transmission Date: 20240410
  Serious: Yes (Hospitalization, Other)
  Sender: FDA-Public Use
  Company Number: US-ANIPHARMA-2024-US-007074

PATIENT
  Sex: Female

DRUGS (1)
  1. PROPRANOLOL HYDROCHLORIDE [Suspect]
     Active Substance: PROPRANOLOL HYDROCHLORIDE
     Indication: Product used for unknown indication

REACTIONS (14)
  - Jaw fracture [Unknown]
  - Vertigo [Recovering/Resolving]
  - Muscular weakness [Recovering/Resolving]
  - Syncope [Unknown]
  - Anaphylactic shock [Unknown]
  - Seizure [Unknown]
  - Pain [Recovering/Resolving]
  - Headache [Recovering/Resolving]
  - Eye prosthesis insertion [Recovering/Resolving]
  - Dizziness [Recovering/Resolving]
  - Fall [Recovering/Resolving]
  - Craniofacial fracture [Unknown]
  - Craniofacial fracture [Unknown]
  - Craniofacial fracture [Unknown]
